FAERS Safety Report 8132869-1 (Version None)
Quarter: 2012Q1

REPORT INFORMATION
  Report Type: 
  Country: None (occurrence: None)
  Receive Date: 20120213
  Receipt Date: 20120207
  Transmission Date: 20120608
  Serious: Yes (Other)
  Sender: FDA-Public Use
  Company Number: US-JNJFOC-20120109173

PATIENT
  Sex: Female
  Weight: 70.31 kg

DRUGS (2)
  1. XARELTO [Suspect]
     Indication: HEART RATE IRREGULAR
     Route: 048
     Dates: start: 20111101
  2. ANTI-HYPERTENSIVE [Concomitant]

REACTIONS (1)
  - OEDEMA PERIPHERAL [None]
